FAERS Safety Report 21612651 (Version 2)
Quarter: 2022Q4

REPORT INFORMATION
  Report Type: Spontaneous
  Country: DE (occurrence: DE)
  Receive Date: 20221118
  Receipt Date: 20221128
  Transmission Date: 20230113
  Serious: Yes (Hospitalization)
  Sender: FDA-Public Use
  Company Number: DE-ROCHE-3187102

PATIENT
  Age: 23 Year
  Sex: Male
  Weight: 78 kg

DRUGS (12)
  1. IBUPROFEN [Suspect]
     Active Substance: IBUPROFEN
     Indication: Premedication
     Dosage: 400 MILLIGRAM
     Route: 048
     Dates: start: 20220921
  2. DIMETHINDENE [Suspect]
     Active Substance: DIMETHINDENE
     Indication: Premedication
     Dosage: 4 MILLIGRAM
     Route: 042
     Dates: start: 20220921
  3. METHYLPREDNISOLONE [Suspect]
     Active Substance: METHYLPREDNISOLONE
     Indication: Premedication
     Dosage: 100 MILLIGRAM
     Route: 042
     Dates: start: 20220921
  4. PREDNISOLONE [Suspect]
     Active Substance: PREDNISOLONE
     Indication: Premedication
     Dosage: 100 MILLIGRAM
     Route: 042
     Dates: start: 20220921
  5. OCREVUS [Suspect]
     Active Substance: OCRELIZUMAB
     Indication: Relapsing-remitting multiple sclerosis
     Dosage: 600 MILLIGRAM
     Route: 042
     Dates: start: 20220921
  6. OCREVUS [Suspect]
     Active Substance: OCRELIZUMAB
     Dosage: UNK,FIRST INFUSION
     Route: 042
     Dates: start: 202009
  7. OCREVUS [Suspect]
     Active Substance: OCRELIZUMAB
     Dosage: UNK,SECOND INFUSION
     Route: 042
  8. OCREVUS [Suspect]
     Active Substance: OCRELIZUMAB
     Dosage: UNK,THIRD INFUSION
     Route: 042
  9. OCREVUS [Suspect]
     Active Substance: OCRELIZUMAB
     Dosage: 600 MILLIGRAM (FOURTH INFUSION)
     Route: 042
     Dates: start: 2022
  10. OCREVUS [Suspect]
     Active Substance: OCRELIZUMAB
     Dosage: UNK,FIRST INFUSION
     Route: 042
     Dates: start: 202103
  11. ERGOCALCIFEROL [Concomitant]
     Active Substance: ERGOCALCIFEROL
     Indication: Product used for unknown indication
     Dosage: 400 INTERNATIONAL UNIT
     Route: 065
     Dates: start: 202203
  12. VITAMIN D [Concomitant]
     Active Substance: VITAMIN D NOS
     Indication: Product used for unknown indication
     Dosage: 400 INTERNATIONAL UNIT
     Route: 065
     Dates: start: 202203

REACTIONS (7)
  - Mucosal disorder [Recovered/Resolved]
  - Dizziness [Recovered/Resolved]
  - Urticaria [Unknown]
  - Sensation of foreign body [Recovered/Resolved]
  - Rash [Recovered/Resolved]
  - Fatigue [Recovered/Resolved]
  - Hypotension [Recovered/Resolved]

NARRATIVE: CASE EVENT DATE: 20220921
